FAERS Safety Report 7098889-3 (Version None)
Quarter: 2010Q4

REPORT INFORMATION
  Report Type: 
  Country: None (occurrence: None)
  Receive Date: 20101112
  Receipt Date: 20101103
  Transmission Date: 20110411
  Serious: Yes (Hospitalization, Other)
  Sender: FDA-Public Use
  Company Number: US-TEVA-253966USA

PATIENT
  Sex: Female

DRUGS (1)
  1. COPAXONE [Suspect]
     Indication: MULTIPLE SCLEROSIS
     Route: 058
     Dates: start: 20050101, end: 20100101

REACTIONS (5)
  - ABASIA [None]
  - CLOSTRIDIAL INFECTION [None]
  - IMPAIRED HEALING [None]
  - MEGACOLON [None]
  - MOVEMENT DISORDER [None]
